FAERS Safety Report 7406198-5 (Version None)
Quarter: 2011Q2

REPORT INFORMATION
  Report Type: 
  Country: None (occurrence: None)
  Receive Date: 20110406
  Receipt Date: 20110406
  Transmission Date: 20111010
  Serious: Yes (Other)
  Sender: FDA-Public Use
  Company Number: None

PATIENT
  Sex: Male

DRUGS (1)
  1. HUMATROPE [Suspect]
     Indication: BODY HEIGHT BELOW NORMAL
     Dosage: 1MG 6 DAYS A WEEK SUBCUTANEOUSLY
     Route: 058
     Dates: start: 20110304

REACTIONS (2)
  - FLUSHING [None]
  - SKIN WARM [None]
